FAERS Safety Report 6261741-7 (Version None)
Quarter: 2009Q3

REPORT INFORMATION
  Report Type: 
  Country: None (occurrence: None)
  Receive Date: 20090709
  Receipt Date: 20090527
  Transmission Date: 20100115
  Serious: Yes (Death, Other)
  Sender: FDA-Public Use
  Company Number: US-TYCO HEALTHCARE/MALLINCKRODT-T200901317

PATIENT
  Sex: Female
  Weight: 61.224 kg

DRUGS (7)
  1. OPTIMARK [Suspect]
     Indication: ANGIOGRAM
     Dosage: UNK
     Dates: start: 20030715, end: 20030715
  2. OPTIMARK [Suspect]
     Dosage: UNK
     Dates: start: 20040831, end: 20040831
  3. MAGNEVIST [Suspect]
     Indication: ANGIOGRAM
     Dosage: UNK
     Dates: start: 20001226, end: 20001226
  4. MAGNEVIST [Suspect]
     Dosage: UNK
     Dates: start: 20010925, end: 20010925
  5. MAGNEVIST [Suspect]
     Dosage: UNK
     Dates: start: 20040428, end: 20040428
  6. MAGNEVIST [Suspect]
     Dosage: 20 ML, SINGLE
     Dates: start: 20041031, end: 20041031
  7. BLOOD PRESSURE MEDICATIONS [Concomitant]

REACTIONS (2)
  - NEPHROGENIC SYSTEMIC FIBROSIS [None]
  - OFF LABEL USE [None]
